FAERS Safety Report 18643765 (Version 1)
Quarter: 2020Q4

REPORT INFORMATION
  Report Type: Spontaneous
  Country: US (occurrence: US)
  Receive Date: 20201221
  Receipt Date: 20201221
  Transmission Date: 20210114
  Serious: Yes (Other)
  Sender: FDA-Public Use
  Company Number: None

PATIENT
  Age: 89 Year
  Sex: Female
  Weight: 61.2 kg

DRUGS (14)
  1. VITAMIN D [Concomitant]
     Active Substance: VITAMIN D NOS
  2. ZOFRAN [Concomitant]
     Active Substance: ONDANSETRON HYDROCHLORIDE
  3. NITROSTAT [Concomitant]
     Active Substance: NITROGLYCERIN
  4. CALCIUM CITRATE [Concomitant]
     Active Substance: CALCIUM CITRATE
  5. SYNTHROID [Concomitant]
     Active Substance: LEVOTHYROXINE SODIUM
  6. MULTIVTIAMIN [Concomitant]
  7. TYLENOL [Concomitant]
     Active Substance: ACETAMINOPHEN
  8. ZETIA [Concomitant]
     Active Substance: EZETIMIBE
  9. LISINOPRIL. [Concomitant]
     Active Substance: LISINOPRIL
  10. ASPIRIN. [Concomitant]
     Active Substance: ASPIRIN
  11. CAPECITABINE. [Suspect]
     Active Substance: CAPECITABINE
     Indication: GASTRIC CANCER
     Route: 048
     Dates: start: 20200413
  12. CHLORTHALIDONE. [Concomitant]
     Active Substance: CHLORTHALIDONE
  13. ENOXAPARIN [Concomitant]
     Active Substance: ENOXAPARIN
  14. ATORVASTATIN [Concomitant]
     Active Substance: ATORVASTATIN

REACTIONS (1)
  - Stomatitis [None]

NARRATIVE: CASE EVENT DATE: 20201221
